FAERS Safety Report 12851747 (Version 1)
Quarter: 2016Q4

REPORT INFORMATION
  Report Type: Spontaneous
  Country: US (occurrence: US)
  Receive Date: 20161017
  Receipt Date: 20161017
  Transmission Date: 20170207
  Serious: Yes (Other)
  Sender: FDA-Public Use
  Company Number: US-JNJFOC-20160911753

PATIENT
  Sex: Male

DRUGS (3)
  1. MORPHINE SULFATE. [Concomitant]
     Active Substance: MORPHINE SULFATE
  2. GABAPENTIN. [Concomitant]
     Active Substance: GABAPENTIN
  3. IMBRUVICA [Suspect]
     Active Substance: IBRUTINIB
     Indication: PRODUCT USED FOR UNKNOWN INDICATION
     Route: 048
     Dates: start: 20151125

REACTIONS (1)
  - Disease progression [Not Recovered/Not Resolved]
